FAERS Safety Report 8840122 (Version 1)
Quarter: 2012Q4

REPORT INFORMATION
  Report Type: 
  Country: US (occurrence: US)
  Receive Date: 20121015
  Receipt Date: 20121015
  Transmission Date: 20130627
  Serious: No
  Sender: FDA-Public Use
  Company Number: US-PFIZER INC-2012255050

PATIENT
  Age: 69 Year
  Sex: Female
  Weight: 63.49 kg

DRUGS (5)
  1. LYRICA [Suspect]
     Indication: BACK PAIN
     Dosage: 75 mg, daily
  2. LYRICA [Suspect]
     Dosage: increased to 100 mg daily, again 100 mg 2x/day and eventually 100 mg 3x/day
  3. LISINOPRIL [Concomitant]
     Indication: HYPERTENSION
     Dosage: 20 mg, daily
  4. SIMVASTATIN [Concomitant]
     Indication: BLOOD CHOLESTEROL INCREASED
     Dosage: 40 mg, daily
  5. TOPROL XL [Concomitant]
     Indication: CARDIAC DISORDER
     Dosage: 100 mg, daily

REACTIONS (1)
  - Drug ineffective [Unknown]
